FAERS Safety Report 5242852-1 (Version None)
Quarter: 2007Q1

REPORT INFORMATION
  Report Type: 
  Country: None (occurrence: None)
  Receive Date: 20070221
  Receipt Date: 20070216
  Transmission Date: 20070707
  Serious: Yes (Other)
  Sender: FDA-Public Use
  Company Number: US-PURDUE-USA_2007_0026536

PATIENT
  Age: 36 Year
  Sex: Male

DRUGS (3)
  1. OXYCODONE HCL [Suspect]
     Indication: BACK PAIN
     Dosage: UNK MG, UNK
     Route: 048
  2. ALCOHOL [Suspect]
     Indication: DRUG ABUSER
     Dosage: UNK, UNK
  3. MARIJUANA [Suspect]
     Indication: DRUG ABUSER
     Dosage: UNK, UNK

REACTIONS (3)
  - LOSS OF CONSCIOUSNESS [None]
  - POISONING [None]
  - SUBSTANCE ABUSE [None]
